FAERS Safety Report 23403299 (Version 1)
Quarter: 2024Q1

REPORT INFORMATION
  Report Type: Spontaneous
  Country: CN (occurrence: CN)
  Receive Date: 20240116
  Receipt Date: 20240116
  Transmission Date: 20240409
  Serious: No
  Sender: FDA-Public Use
  Company Number: CN-ALKEM LABORATORIES LIMITED-CN-ALKEM-2023-07497

PATIENT
  Age: 35 Year
  Sex: Male

DRUGS (6)
  1. SILDENAFIL [Suspect]
     Active Substance: SILDENAFIL
     Indication: Erectile dysfunction
     Dosage: 50 MILLIGRAM BIW (TWICE A WEEK)
     Route: 048
  2. SILDENAFIL [Suspect]
     Active Substance: SILDENAFIL
     Indication: Psychogenic erectile dysfunction
  3. SILDENAFIL [Suspect]
     Active Substance: SILDENAFIL
     Indication: Infertility
  4. TADALAFIL [Suspect]
     Active Substance: TADALAFIL
     Indication: Erectile dysfunction
     Dosage: 20 MILLIGRAM, BIW (TWICE A WEEK)
     Route: 048
  5. TADALAFIL [Suspect]
     Active Substance: TADALAFIL
     Indication: Psychogenic erectile dysfunction
  6. TADALAFIL [Suspect]
     Active Substance: TADALAFIL
     Indication: Infertility

REACTIONS (1)
  - Drug ineffective [Unknown]
